FAERS Safety Report 13661600 (Version 1)
Quarter: 2017Q2

REPORT INFORMATION
  Report Type: Spontaneous
  Country: US (occurrence: US)
  Receive Date: 20170616
  Receipt Date: 20170616
  Transmission Date: 20170830
  Serious: No
  Sender: FDA-Public Use
  Company Number: US-US WORLDMEDS, LLC-USW201608-000578

PATIENT
  Age: 91 Year
  Sex: Female

DRUGS (15)
  1. CARBIDOPA. [Concomitant]
     Active Substance: CARBIDOPA
  2. IPRATROPIUM BROMIDE. [Concomitant]
     Active Substance: IPRATROPIUM BROMIDE
  3. APOKYN [Suspect]
     Active Substance: APOMORPHINE HYDROCHLORIDE
     Indication: PARKINSON^S DISEASE
     Route: 058
     Dates: start: 20160808
  4. TIGAN [Concomitant]
     Active Substance: TRIMETHOBENZAMIDE HYDROCHLORIDE
  5. NEUPRO [Concomitant]
     Active Substance: ROTIGOTINE
  6. ESTRACE [Concomitant]
     Active Substance: ESTRADIOL
  7. CARBIDOPA. [Concomitant]
     Active Substance: CARBIDOPA
  8. OMEPRAZOLE. [Concomitant]
     Active Substance: OMEPRAZOLE
  9. LOTEMAX [Concomitant]
     Active Substance: LOTEPREDNOL ETABONATE
  10. NASONEX [Concomitant]
     Active Substance: MOMETASONE FUROATE
  11. KCL [Concomitant]
     Active Substance: POTASSIUM CHLORIDE
  12. FUROSEMIDE. [Concomitant]
     Active Substance: FUROSEMIDE
  13. IBANDRONATE SODIUM. [Concomitant]
     Active Substance: IBANDRONATE SODIUM
  14. DULOXETINE. [Concomitant]
     Active Substance: DULOXETINE
  15. METOPROLOL ER [Concomitant]
     Active Substance: METOPROLOL SUCCINATE

REACTIONS (4)
  - Dysgeusia [Recovered/Resolved]
  - Salivary hypersecretion [Recovered/Resolved]
  - Asthenia [Recovered/Resolved]
  - Depression [Recovered/Resolved]
